FAERS Safety Report 8913066 (Version 1)
Quarter: 2012Q4

REPORT INFORMATION
  Report Type: Spontaneous
  Country: JP (occurrence: None)
  Receive Date: 20121113
  Receipt Date: 20121113
  Transmission Date: 20130627
  Serious: Yes (Life-Threatening)
  Sender: FDA-Public Use
  Company Number: DKLU1086213

PATIENT
  Age: 25 Year
  Sex: Female

DRUGS (3)
  1. COSMEGEN [Suspect]
     Indication: PRODUCT USED FOR UNKNOWN INDICATION
     Dosage: Intravenous (not otherwise specified)
     Route: 042
  2. ENDOXAN [Suspect]
     Indication: PRODUCT USED FOR UNKNOWN INDICATION
     Route: 051
  3. ONCOVIN [Suspect]
     Indication: PRODUCT USED FOR UNKNOWN INDICATION
     Dosage: Intravenous (not otherwise specified)
     Route: 042

REACTIONS (2)
  - Ventricular tachycardia [None]
  - Cardiac failure [None]
